FAERS Safety Report 6406179-4 (Version None)
Quarter: 2009Q4

REPORT INFORMATION
  Report Type: 
  Country: None (occurrence: None)
  Receive Date: 20091019
  Receipt Date: 20091005
  Transmission Date: 20100525
  Serious: Yes (Other)
  Sender: FDA-Public Use
  Company Number: TR-MYLANLABS-2009S1017329

PATIENT
  Age: 32 Year
  Sex: Male

DRUGS (1)
  1. UROPAN [Suspect]
     Indication: ALCOHOLISM
     Dosage: 1-2 TABLETS/DAY, INCREASED TO 100 TABLETS/DAY

REACTIONS (5)
  - AGGRESSION [None]
  - AGITATION [None]
  - CHILLS [None]
  - DEPENDENCE [None]
  - INSOMNIA [None]
